FAERS Safety Report 18558500 (Version 2)
Quarter: 2021Q1

REPORT INFORMATION
  Report Type: Spontaneous
  Country: IT (occurrence: IT)
  Receive Date: 20201130
  Receipt Date: 20210102
  Transmission Date: 20210419
  Serious: Yes (Death, Life-Threatening, Hospitalization, Other)
  Sender: FDA-Public Use
  Company Number: IT-ACCORD-207927

PATIENT
  Age: 79 Year
  Sex: Male

DRUGS (5)
  1. ONDANSETRON [Concomitant]
     Active Substance: ONDANSETRON
     Indication: PREMEDICATION
  2. DEXAMETHASONE. [Concomitant]
     Active Substance: DEXAMETHASONE
     Indication: PREMEDICATION
     Route: 042
  3. PACLITAXEL/PACLITAXEL LIPOSOME [Suspect]
     Active Substance: PACLITAXEL
     Indication: TRANSITIONAL CELL CARCINOMA
     Dosage: 110MG) MIXED WITH 500 CM3 PHYSIOLOGICAL SOLUTION AND INFUSED AT A RATE OF 50ML/H.
  4. CETIRIZINE [Concomitant]
     Active Substance: CETIRIZINE HYDROCHLORIDE
     Indication: PREMEDICATION
  5. RANITIDINE. [Concomitant]
     Active Substance: RANITIDINE
     Indication: PREMEDICATION

REACTIONS (11)
  - Off label use [Unknown]
  - Cardiomegaly [Fatal]
  - Pulmonary oedema [Fatal]
  - Splenomegaly [Fatal]
  - Anaphylactic reaction [Fatal]
  - Emphysema [Fatal]
  - Cardiac arrest [Fatal]
  - Brain oedema [Fatal]
  - Myocardial oedema [Fatal]
  - Hepatomegaly [Fatal]
  - Hypersensitivity [Fatal]
